FAERS Safety Report 9529799 (Version 1)
Quarter: 2013Q3

REPORT INFORMATION
  Report Type: Report from Study
  Country: US (occurrence: US)
  Receive Date: 20130917
  Receipt Date: 20130917
  Transmission Date: 20140515
  Serious: Yes (Other)
  Sender: FDA-Public Use
  Company Number: US-TAKEDA-2013TUS000560

PATIENT
  Sex: 0

DRUGS (6)
  1. COLCRYS [Suspect]
     Indication: GOUT
     Dosage: 0.6 MG, UNK
     Route: 048
     Dates: end: 201302
  2. ALL OTHER THERAPEUTIC PRODUCTS [Concomitant]
     Dosage: UNK
     Route: 048
  3. ANTIHYPERTENSIVES [Concomitant]
     Indication: HYPERTENSION
     Dosage: UNK
     Route: 048
  4. UNKNOWN CHOLESTEROL MEDICATION [Concomitant]
     Indication: BLOOD CHOLESTEROL INCREASED
     Dosage: UNK
     Route: 048
  5. PRADAXA [Concomitant]
     Dosage: UNK
  6. MEDROL                             /00049601/ [Concomitant]
     Indication: GOUT
     Dosage: UNK
     Route: 048

REACTIONS (3)
  - Gastric cancer [Unknown]
  - Bursitis [Not Recovered/Not Resolved]
  - Weight decreased [Recovering/Resolving]
